FAERS Safety Report 8274689-3 (Version None)
Quarter: 2012Q2

REPORT INFORMATION
  Report Type: 
  Country: None (occurrence: None)
  Receive Date: 20120409
  Receipt Date: 20120322
  Transmission Date: 20120825
  Serious: Yes (Other)
  Sender: FDA-Public Use
  Company Number: 2012MA003955

PATIENT

DRUGS (1)
  1. VENLAFAXINE HCL [Suspect]
     Indication: ACCIDENTAL EXPOSURE
     Dosage: 300 MG

REACTIONS (2)
  - ACCIDENTAL EXPOSURE [None]
  - STRESS CARDIOMYOPATHY [None]
